FAERS Safety Report 8556868-0 (Version None)
Quarter: 2012Q3

REPORT INFORMATION
  Report Type: 
  Country: None (occurrence: None)
  Receive Date: 20120801
  Receipt Date: 20120724
  Transmission Date: 20120928
  Serious: Yes (Death, Hospitalization)
  Sender: FDA-Public Use
  Company Number: US-BAYER-2012-056429

PATIENT
  Age: 55 Year
  Sex: Male

DRUGS (1)
  1. NEXAVAR [Suspect]
     Indication: HEPATIC NEOPLASM MALIGNANT
     Dosage: 200 MG, BID
     Dates: start: 20120525, end: 20120605

REACTIONS (8)
  - DEATH [None]
  - AMMONIA INCREASED [None]
  - RASH [None]
  - DEHYDRATION [None]
  - NAUSEA [None]
  - PYREXIA [None]
  - FATIGUE [None]
  - JAUNDICE [None]
